FAERS Safety Report 15260779 (Version 1)
Quarter: 2018Q3

REPORT INFORMATION
  Report Type: Spontaneous
  Country: US (occurrence: US)
  Receive Date: 20180719
  Receipt Date: 20180719
  Transmission Date: 20181010
  Serious: No
  Sender: FDA-Public Use
  Company Number: None

PATIENT
  Age: 52 Year
  Sex: Female
  Weight: 66.22 kg

DRUGS (1)
  1. FLUTICASONE PROPIONATE NASAL SPRAY [Suspect]
     Active Substance: FLUTICASONE PROPIONATE
     Dates: start: 20180420

REACTIONS (5)
  - Cough [None]
  - Epistaxis [None]
  - Dizziness [None]
  - Choking [None]
  - Dysphagia [None]

NARRATIVE: CASE EVENT DATE: 20180422
